FAERS Safety Report 16907295 (Version 2)
Quarter: 2019Q4

REPORT INFORMATION
  Report Type: Spontaneous
  Country: JP (occurrence: JP)
  Receive Date: 20191011
  Receipt Date: 20191104
  Transmission Date: 20200122
  Serious: Yes (Other)
  Sender: FDA-Public Use
  Company Number: JP-009507513-1910JPN000635J

PATIENT
  Age: 70 Year
  Sex: Male
  Weight: 47 kg

DRUGS (8)
  1. SEVOFLURANE. [Concomitant]
     Active Substance: SEVOFLURANE
     Indication: MAINTENANCE OF ANAESTHESIA
     Dosage: UNK DOSAGE FORM
     Route: 065
  2. FENTANYL. [Concomitant]
     Active Substance: FENTANYL
     Dosage: 50 MILLIGRAM, QD
     Route: 042
     Dates: start: 20161031
  3. ULTIVA [Concomitant]
     Active Substance: REMIFENTANIL HYDROCHLORIDE
     Indication: GENERAL ANAESTHESIA
     Dosage: 0.1-0.4G,UNK
     Route: 042
     Dates: start: 20161031
  4. ESLAX INTRAVENOUS 25MG/2.5ML [Suspect]
     Active Substance: ROCURONIUM BROMIDE
     Indication: NEUROMUSCULAR BLOCKING THERAPY
     Dosage: 0.6 MILLIGRAM/KILOGRAM, QD
     Route: 042
     Dates: start: 20161031
  5. FENTANYL. [Concomitant]
     Active Substance: FENTANYL
     Indication: MAINTENANCE OF ANAESTHESIA
     Dosage: 150 MICROGRAM, QD
     Route: 042
     Dates: start: 20161031
  6. SUPRANE [Concomitant]
     Active Substance: DESFLURANE
     Indication: GENERAL ANAESTHESIA
     Dosage: 4 DOSAGE FORM
     Dates: start: 20161031
  7. PROPOFOL. [Concomitant]
     Active Substance: PROPOFOL
     Indication: GENERAL ANAESTHESIA
     Dosage: 40 MILLIGRAM, QD
     Route: 042
     Dates: start: 20161031
  8. BRIDION [Suspect]
     Active Substance: SUGAMMADEX
     Indication: NEUROMUSCULAR BLOCKADE REVERSAL
     Dosage: 100 MILLIGRAM, BID
     Route: 042
     Dates: start: 20161031

REACTIONS (4)
  - Neuromuscular block prolonged [Recovered/Resolved]
  - Drug ineffective [Recovered/Resolved]
  - Laryngeal oedema [Unknown]
  - Spinal muscular atrophy [Unknown]

NARRATIVE: CASE EVENT DATE: 20161031
